FAERS Safety Report 7628891-1 (Version None)
Quarter: 2011Q3

REPORT INFORMATION
  Report Type: 
  Country: None (occurrence: None)
  Receive Date: 20110722
  Receipt Date: 20110217
  Transmission Date: 20111222
  Serious: No
  Sender: FDA-Public Use
  Company Number: US-BAYER-2011-049750

PATIENT
  Age: 89 Year
  Sex: Female
  Weight: 55.329 kg

DRUGS (8)
  1. ALEVE (CAPLET) [Suspect]
     Indication: ARTHRITIS
     Dosage: 2 DF, QD, BOTTLE COUNT 32S
     Route: 048
     Dates: start: 20110215, end: 20110217
  2. DIURETICS [Concomitant]
     Route: 048
  3. ASPIRIN [Concomitant]
     Indication: ISCHAEMIC HEART DISEASE PROPHYLAXIS
     Dosage: 1 DF, QD
     Route: 048
  4. CALCIUM CARBONATE [Concomitant]
     Indication: VITAMIN SUPPLEMENTATION
     Route: 048
  5. NEBULIZER WITH IBUPROFEN/ABUTEROL [Concomitant]
     Dosage: 1 DF, QD
  6. PREDNISONE [Concomitant]
     Dosage: 10 MG, QD
  7. POTASSIUM [Concomitant]
     Indication: VITAMIN SUPPLEMENTATION
     Route: 048
  8. OMEGA-3 [DOCOSAHEXANOIC ACID,EICOSAPENTAENOIC ACID] [Concomitant]
     Indication: VITAMIN SUPPLEMENTATION
     Route: 048

REACTIONS (1)
  - ARTHRALGIA [None]
